FAERS Safety Report 11475556 (Version 1)
Quarter: 2015Q3

REPORT INFORMATION
  Report Type: Spontaneous
  Country: US (occurrence: US)
  Receive Date: 20150909
  Receipt Date: 20150909
  Transmission Date: 20151125
  Serious: No
  Sender: FDA-Public Use
  Company Number: US-ACTELION PHARMACEUTICALS US, INC.-A-NJ2015-119550

PATIENT
  Age: 85 Year
  Sex: Female

DRUGS (22)
  1. ISOSORBIDE. [Concomitant]
     Active Substance: ISOSORBIDE
     Dosage: UNK
  2. SERTRALINE [Concomitant]
     Active Substance: SERTRALINE HYDROCHLORIDE
     Dosage: UNK
  3. ZYRTEC [Concomitant]
     Active Substance: CETIRIZINE HYDROCHLORIDE
  4. IBUPROFEN. [Concomitant]
     Active Substance: IBUPROFEN
  5. VALCHLOR [Suspect]
     Active Substance: MECHLORETHAMINE
     Indication: MYCOSIS FUNGOIDES
     Dosage: UNK
     Route: 061
     Dates: start: 20150515
  6. ATORVASTATIN [Concomitant]
     Active Substance: ATORVASTATIN
     Dosage: UNK
  7. OMEGA-3 ACIDS [Concomitant]
     Active Substance: OMEGA-3 FATTY ACIDS
  8. FUROSEMIDE. [Concomitant]
     Active Substance: FUROSEMIDE
     Dosage: UNK
  9. ASPIRIN. [Concomitant]
     Active Substance: ASPIRIN
     Dosage: UNK
  10. DESOXIMETASONE. [Concomitant]
     Active Substance: DESOXIMETASONE
     Dosage: UNK
  11. FLUOCINOLONE ACETATE [Concomitant]
  12. TYLENOL PM EXTRA STRENGTH [Concomitant]
     Active Substance: ACETAMINOPHEN\DIPHENHYDRAMINE HYDROCHLORIDE
  13. NITROGLYCERIN. [Concomitant]
     Active Substance: NITROGLYCERIN
  14. LISINOPRIL. [Concomitant]
     Active Substance: LISINOPRIL
  15. CARVEDILOL. [Concomitant]
     Active Substance: CARVEDILOL
     Dosage: UNK
  16. HYDROXYZINE HCL [Concomitant]
     Active Substance: HYDROXYZINE HYDROCHLORIDE
     Dosage: UNK
  17. LATANOPROST. [Concomitant]
     Active Substance: LATANOPROST
  18. CALCIUM [Concomitant]
     Active Substance: CALCIUM
  19. LORAZEPAM. [Concomitant]
     Active Substance: LORAZEPAM
     Dosage: UNK
  20. TARGRETIN [Concomitant]
     Active Substance: BEXAROTENE
     Dosage: UNK
  21. ACTONEL [Concomitant]
     Active Substance: RISEDRONATE SODIUM
     Dosage: UNK
  22. DORZOLAMIDE HCL-TIMOLOL MALEATE [Concomitant]

REACTIONS (3)
  - Wound [Recovering/Resolving]
  - Condition aggravated [Unknown]
  - Wound haemorrhage [Recovering/Resolving]
